FAERS Safety Report 20459387 (Version 10)
Quarter: 2023Q4

REPORT INFORMATION
  Report Type: Spontaneous
  Country: BR (occurrence: BR)
  Receive Date: 20220211
  Receipt Date: 20231107
  Transmission Date: 20240109
  Serious: Yes (Hospitalization, Other)
  Sender: FDA-Public Use
  Company Number: BR-GLAXOSMITHKLINE-BR2022AMR023116

PATIENT

DRUGS (10)
  1. BENLYSTA [Suspect]
     Active Substance: BELIMUMAB
     Indication: Systemic lupus erythematosus
     Dosage: 800 MG, Q4W, 2 BOTTLES OF 400 MG
     Route: 042
     Dates: start: 2017, end: 2019
  2. BENLYSTA [Suspect]
     Active Substance: BELIMUMAB
     Dosage: 800 MG, Q4W
     Route: 042
     Dates: start: 20190201, end: 202208
  3. BENLYSTA [Suspect]
     Active Substance: BELIMUMAB
     Dosage: 400 MG, Q4W, 2 X
     Route: 042
     Dates: start: 20220215
  4. BENLYSTA [Suspect]
     Active Substance: BELIMUMAB
     Dosage: 800 MG, Q4W
     Route: 042
     Dates: start: 202203, end: 202209
  5. BENLYSTA [Suspect]
     Active Substance: BELIMUMAB
     Dosage: 800 MG, Q4W
     Route: 042
     Dates: start: 202310
  6. HYDROXYCHLOROQUINE [Concomitant]
     Active Substance: HYDROXYCHLOROQUINE
     Indication: Product used for unknown indication
     Dosage: 1 DF, QD,1 TABLET IN THE EVENING
  7. UNSPECIFIED INGREDIENT [Concomitant]
     Active Substance: UNSPECIFIED INGREDIENT
     Indication: Product used for unknown indication
     Dosage: UNK
  8. LOSARTAN [Concomitant]
     Active Substance: LOSARTAN
     Indication: Product used for unknown indication
     Dosage: 2 DF, QD, 2 TABLET IN THE MORNING
  9. MYCOPHENOLIC ACID [Concomitant]
     Active Substance: MYCOPHENOLIC ACID
     Indication: Product used for unknown indication
     Dosage: 2 DF, TID,2 TABLETS IN THE MORNING, AFTERNOON AND EVENING
  10. MYCOPHENOLIC ACID [Concomitant]
     Active Substance: MYCOPHENOLIC ACID
     Dosage: 500 MG, QID, 2 PILLS IN MORNING AND 2 PILLS IN NIGHT

REACTIONS (14)
  - Systemic lupus erythematosus [Not Recovered/Not Resolved]
  - Lupus nephritis [Recovering/Resolving]
  - Illness [Recovered/Resolved]
  - Swelling [Recovered/Resolved]
  - Renal failure [Recovered/Resolved]
  - Malaise [Unknown]
  - Fatigue [Unknown]
  - Stress [Unknown]
  - Therapy interrupted [Unknown]
  - Product dose omission issue [Unknown]
  - Drug ineffective [Unknown]
  - Product complaint [Unknown]
  - Product availability issue [Unknown]
  - Inappropriate schedule of product administration [Unknown]

NARRATIVE: CASE EVENT DATE: 20210101
